FAERS Safety Report 8306153-7 (Version None)
Quarter: 2012Q2

REPORT INFORMATION
  Report Type: 
  Country: None (occurrence: None)
  Receive Date: 20120423
  Receipt Date: 20120417
  Transmission Date: 20120825
  Serious: Yes (Hospitalization)
  Sender: FDA-Public Use
  Company Number: KR-VALEANT-2012VX001758

PATIENT
  Age: 60 Year
  Sex: Male

DRUGS (1)
  1. FLUOROURACIL [Suspect]
     Indication: COLON CANCER
     Route: 065

REACTIONS (5)
  - ACUTE MYELOID LEUKAEMIA [None]
  - ANAEMIA [None]
  - DYSPNOEA EXERTIONAL [None]
  - ASTHENIA [None]
  - THROMBOCYTOPENIA [None]
